FAERS Safety Report 25100561 (Version 1)
Quarter: 2025Q1

REPORT INFORMATION
  Report Type: Spontaneous
  Country: US (occurrence: US)
  Receive Date: 20250320
  Receipt Date: 20250320
  Transmission Date: 20250408
  Serious: Yes (Hospitalization)
  Sender: SANOFI AVENTIS
  Company Number: US-SA-2025SA081637

PATIENT
  Age: 85 Year
  Sex: Female
  Weight: 77.56 kg

DRUGS (24)
  1. DUPIXENT [Suspect]
     Active Substance: DUPILUMAB
     Indication: Asthma
     Dosage: 300.000MG QOW
     Route: 058
     Dates: start: 20181220
  2. ALBUTEROL SULFATE [Concomitant]
     Active Substance: ALBUTEROL SULFATE
  3. Artificial Tears [Concomitant]
  4. ASCORBIC ACID [Concomitant]
     Active Substance: ASCORBIC ACID
  5. CALCIUM [Concomitant]
     Active Substance: CALCIUM
  6. ERTACZO [Concomitant]
     Active Substance: SERTACONAZOLE NITRATE
  7. ASPIRIN [Concomitant]
     Active Substance: ASPIRIN
  8. XOLAIR [Concomitant]
     Active Substance: OMALIZUMAB
  9. FUROSEMIDE [Concomitant]
     Active Substance: FUROSEMIDE
  10. IPRATROPIUM BROMIDE [Concomitant]
     Active Substance: IPRATROPIUM BROMIDE
  11. BREO ELLIPTA [Concomitant]
     Active Substance: FLUTICASONE FUROATE\VILANTEROL TRIFENATATE
  12. FLUTICASONE PROPIONATE [Concomitant]
     Active Substance: FLUTICASONE PROPIONATE
  13. AZELASTINE HYDROCHLORIDE [Concomitant]
     Active Substance: AZELASTINE HYDROCHLORIDE
  14. METOPROLOL TARTRATE [Concomitant]
     Active Substance: METOPROLOL TARTRATE
  15. METRONIDAZOLE [Concomitant]
     Active Substance: METRONIDAZOLE
  16. ROSUVASTATIN CALCIUM [Concomitant]
     Active Substance: ROSUVASTATIN CALCIUM
  17. CEPHALEXIN [Concomitant]
     Active Substance: CEPHALEXIN
  18. FERROUS SULFATE [Concomitant]
     Active Substance: FERROUS SULFATE
  19. SPIRIVA [Concomitant]
     Active Substance: TIOTROPIUM BROMIDE MONOHYDRATE
  20. OZEMPIC [Concomitant]
     Active Substance: SEMAGLUTIDE
  21. PREDNISONE [Concomitant]
     Active Substance: PREDNISONE
  22. ACYCLOVIR [Concomitant]
     Active Substance: ACYCLOVIR
  23. LIDOCAINE [Concomitant]
     Active Substance: LIDOCAINE
  24. GLIPIZIDE [Concomitant]
     Active Substance: GLIPIZIDE

REACTIONS (2)
  - Hospitalisation [Unknown]
  - Weight decreased [Unknown]

NARRATIVE: CASE EVENT DATE: 20250101
